FAERS Safety Report 5645629-8 (Version None)
Quarter: 2008Q1

REPORT INFORMATION
  Report Type: 
  Country: None (occurrence: None)
  Receive Date: 20080229
  Receipt Date: 20080219
  Transmission Date: 20080703
  Serious: Yes (Other)
  Sender: FDA-Public Use
  Company Number: CL-PFIZER INC-2007007941

PATIENT
  Age: 65 Year
  Sex: Female

DRUGS (6)
  1. LYRICA [Suspect]
     Indication: PAIN
     Route: 048
  2. LYRICA [Suspect]
     Indication: HEADACHE
  3. NORVASC [Concomitant]
     Dosage: DAILY DOSE:10MG
     Route: 048
  4. ALPRAZOLAM [Concomitant]
     Dosage: DAILY DOSE:.5MG
     Route: 048
  5. ACETAMINOPHEN [Concomitant]
     Route: 048
     Dates: start: 20070101
  6. LOSEC I.V. [Concomitant]

REACTIONS (17)
  - ABDOMINAL DISTENSION [None]
  - BRUXISM [None]
  - DEPRESSION [None]
  - DRY THROAT [None]
  - DYSLIPIDAEMIA [None]
  - DYSPHONIA [None]
  - GASTRITIS [None]
  - GLUCOSE TOLERANCE IMPAIRED [None]
  - HEADACHE [None]
  - HEPATIC PAIN [None]
  - HYPERTENSION [None]
  - INSOMNIA [None]
  - OEDEMA PERIPHERAL [None]
  - PAIN IN EXTREMITY [None]
  - RENAL PAIN [None]
  - URINARY INCONTINENCE [None]
  - WEIGHT INCREASED [None]
